FAERS Safety Report 7576403-3 (Version None)
Quarter: 2011Q2

REPORT INFORMATION
  Report Type: 
  Country: None (occurrence: None)
  Receive Date: 20110628
  Receipt Date: 20110107
  Transmission Date: 20111010
  Serious: Yes (Hospitalization)
  Sender: FDA-Public Use
  Company Number: US-BAYER-201029348NA

PATIENT
  Age: 28 Year
  Sex: Female
  Weight: 64.4 kg

DRUGS (6)
  1. YAZ [Suspect]
     Indication: MENSTRUAL CYCLE MANAGEMENT
     Route: 048
     Dates: start: 20051219, end: 20060701
  2. YAZ [Suspect]
     Indication: ORAL CONTRACEPTION
  3. EFFEXOR [Concomitant]
     Indication: DEPRESSION
     Dosage: UNK
     Dates: start: 20060727, end: 20060901
  4. TRAMADOL HCL [Concomitant]
     Indication: PAIN
     Dosage: UNK
     Dates: start: 20060707, end: 20060817
  5. ANTIBIOTICS [Concomitant]
     Dosage: UNK
     Dates: start: 20010101
  6. EFFEXOR [Concomitant]
     Indication: ANXIETY

REACTIONS (3)
  - PULMONARY EMBOLISM [None]
  - DYSPNOEA [None]
  - CHEST PAIN [None]
